FAERS Safety Report 14492357 (Version 1)
Quarter: 2018Q1

REPORT INFORMATION
  Report Type: Spontaneous
  Country: KR (occurrence: KR)
  Receive Date: 20180206
  Receipt Date: 20180206
  Transmission Date: 20180509
  Serious: Yes (Other)
  Sender: FDA-Public Use
  Company Number: KR-BAYER-2018-017909

PATIENT
  Sex: Female

DRUGS (1)
  1. QLAIRA [Suspect]
     Active Substance: DIENOGEST\ESTRADIOL VALERATE
     Indication: HORMONE REPLACEMENT THERAPY
     Route: 048

REACTIONS (3)
  - Off label use [None]
  - Product use in unapproved indication [None]
  - Postmenopausal haemorrhage [None]
